FAERS Safety Report 10272957 (Version 1)
Quarter: 2014Q2

REPORT INFORMATION
  Report Type: Spontaneous
  Country: LB (occurrence: None)
  Receive Date: 20140630
  Receipt Date: 20140630
  Transmission Date: 20141212
  Serious: Yes (Hospitalization)
  Sender: FDA-Public Use
  Company Number: FK201402517

PATIENT
  Age: 39 Year
  Sex: Female

DRUGS (5)
  1. OXALIPLATIN [Suspect]
     Indication: RECTAL CANCER METASTATIC
     Route: 042
  2. CALCIUM FOLINATE (CALCIUM FOLINATE) [Concomitant]
  3. FLUOROURACIL (FLUOROURACIL) [Concomitant]
  4. BEVACIZUMAB (BEVACIZUMAB) [Concomitant]
  5. CAPECITABINE (CAPECITABINE) (CAPECITABINE) [Concomitant]

REACTIONS (5)
  - Thrombocytopenia [None]
  - Purpura [None]
  - Blood lactate dehydrogenase increased [None]
  - Fibrin D dimer increased [None]
  - Coombs direct test positive [None]
